FAERS Safety Report 8896357 (Version 1)
Quarter: 2012Q4

REPORT INFORMATION
  Report Type: Spontaneous
  Country: US (occurrence: None)
  Receive Date: 20121107
  Receipt Date: 20121107
  Transmission Date: 20130627
  Serious: Yes (Disabling)
  Sender: FDA-Public Use
  Company Number: None

PATIENT
  Sex: Female
  Weight: 54.43 kg

DRUGS (1)
  1. RISPERIDONE [Suspect]
     Indication: BIPOLAR DISORDER
     Dosage: 1 daily po
     Route: 048
     Dates: start: 20120307, end: 20120502

REACTIONS (4)
  - Blepharospasm [None]
  - Compulsive shopping [None]
  - Drug ineffective [None]
  - Unevaluable event [None]
